FAERS Safety Report 5395754-4 (Version None)
Quarter: 2007Q3

REPORT INFORMATION
  Report Type: 
  Country: None (occurrence: None)
  Receive Date: 20070724
  Receipt Date: 20070712
  Transmission Date: 20080115
  Serious: Yes (Death, Other)
  Sender: FDA-Public Use
  Company Number: US-PFIZER INC-2006140472

PATIENT
  Sex: Female
  Weight: 40.8 kg

DRUGS (4)
  1. CELEBREX [Suspect]
     Route: 048
     Dates: start: 19991117, end: 20001101
  2. BEXTRA [Suspect]
     Indication: ARTHRITIS
     Route: 048
     Dates: start: 20040602, end: 20040930
  3. BEXTRA [Suspect]
     Indication: ORTHOPEDIC PROCEDURE
  4. VIOXX [Suspect]
     Route: 048
     Dates: start: 20010411, end: 20040809

REACTIONS (2)
  - HAEMORRHAGIC STROKE [None]
  - MYOCARDIAL INFARCTION [None]
